FAERS Safety Report 9054494 (Version 1)
Quarter: 2013Q1

REPORT INFORMATION
  Report Type: Spontaneous
  Country: US (occurrence: US)
  Receive Date: 20130208
  Receipt Date: 20130208
  Transmission Date: 20140127
  Serious: No
  Sender: FDA-Public Use
  Company Number: US-GLAXOSMITHKLINE-A0991145A

PATIENT
  Sex: Female

DRUGS (3)
  1. PAXIL [Suspect]
     Indication: PRODUCT USED FOR UNKNOWN INDICATION
     Dosage: 5MG UNKNOWN
  2. ERYTHROMYCIN [Suspect]
     Indication: BRONCHITIS
  3. TRAVATAN [Concomitant]

REACTIONS (4)
  - Pruritus [Unknown]
  - Urticaria [Unknown]
  - Restlessness [Unknown]
  - Terminal insomnia [Unknown]
